FAERS Safety Report 17398281 (Version 1)
Quarter: 2020Q1

REPORT INFORMATION
  Report Type: Spontaneous
  Country: AT (occurrence: AT)
  Receive Date: 20200210
  Receipt Date: 20200210
  Transmission Date: 20200409
  Serious: Yes (Other)
  Sender: FDA-Public Use
  Company Number: AT-BAUSCH-BL-2018-024771

PATIENT
  Age: 46 Year
  Sex: Female

DRUGS (1)
  1. PLENVU [Suspect]
     Active Substance: ASCORBIC ACID\POLYETHYLENE GLYCOL 3350\POTASSIUM CHLORIDE\SODIUM ASCORBATE\SODIUM CHLORIDE\SODIUM SULFATE
     Indication: BOWEL PREPARATION
     Route: 048
     Dates: start: 20180827

REACTIONS (6)
  - Vomiting [Unknown]
  - Diarrhoea [Recovered/Resolved]
  - Nausea [Unknown]
  - Drug ineffective [Unknown]
  - Cardiovascular disorder [Unknown]
  - Headache [Unknown]

NARRATIVE: CASE EVENT DATE: 20180827
